FAERS Safety Report 4402997-2 (Version None)
Quarter: 2004Q3

REPORT INFORMATION
  Report Type: 
  Country: None (occurrence: None)
  Receive Date: 20040721
  Receipt Date: 20031001
  Transmission Date: 20050211
  Serious: No
  Sender: FDA-Public Use
  Company Number: US-GLAXOSMITHKLINE-A0428240A

PATIENT
  Age: 48 Year
  Sex: Female

DRUGS (1)
  1. IMITREX [Suspect]
     Indication: MIGRAINE
     Dosage: 1TAB VARIABLE DOSE
     Route: 048
     Dates: start: 19990101

REACTIONS (1)
  - ALOPECIA [None]
